FAERS Safety Report 9351717 (Version 1)
Quarter: 2013Q2

REPORT INFORMATION
  Report Type: Spontaneous
  Country: DE (occurrence: None)
  Receive Date: 20130612
  Receipt Date: 20130612
  Transmission Date: 20140414
  Serious: Yes (Other)
  Sender: FDA-Public Use
  Company Number: 2013-225

PATIENT
  Age: 59 Year
  Sex: Female

DRUGS (8)
  1. CLOZAPINE [Suspect]
     Indication: SCHIZOPHRENIA, CATATONIC TYPE
     Route: 048
  2. PERAZINE [Suspect]
     Indication: AGITATION
     Route: 048
  3. BENPERIDOL [Concomitant]
  4. CHLORPROTHIXENE (CHLORPROTHIXENE) [Concomitant]
  5. TRIMIPRAMINE (TRIMIPRAMINE) [Concomitant]
  6. LORAZEPAM (LORAZEPAM) [Concomitant]
  7. PIRENZEPINE (PIRENZEPINE) [Concomitant]
  8. L-THROXINE (L-THYROXINE) [Concomitant]

REACTIONS (6)
  - Antipsychotic drug level increased [None]
  - Agitation [None]
  - Salivary hypersecretion [None]
  - Confusional state [None]
  - Drug interaction [None]
  - Electroencephalogram abnormal [None]
